FAERS Safety Report 7159085-4 (Version None)
Quarter: 2010Q4

REPORT INFORMATION
  Report Type: 
  Country: None (occurrence: None)
  Receive Date: 20101214
  Receipt Date: 20101207
  Transmission Date: 20110411
  Serious: Yes (Other)
  Sender: FDA-Public Use
  Company Number: CHPA2010US18791

PATIENT
  Age: 76 Year
  Sex: Female
  Weight: 68.027 kg

DRUGS (3)
  1. VOLTAREN [Suspect]
     Indication: OSTEOARTHRITIS
     Dosage: FIRST APPLICATION OF 2 GRAMS; SECOND APPLICATION OF 4 GRAMS
     Route: 061
     Dates: start: 20101125, end: 20101125
  2. VOLTAREN [Suspect]
     Dosage: 4 GRAMS, BID
     Dates: start: 20101126, end: 20101126
  3. ACETYLSALICYLIC ACID [Concomitant]
     Indication: ARTHRITIS
     Dosage: 2 DF, UNK
     Route: 048

REACTIONS (2)
  - APPLICATION SITE DISCOLOURATION [None]
  - INFECTION [None]
